FAERS Safety Report 7643484-8 (Version None)
Quarter: 2011Q3

REPORT INFORMATION
  Report Type: 
  Country: None (occurrence: None)
  Receive Date: 20110729
  Receipt Date: 20110711
  Transmission Date: 20111222
  Serious: Yes (Other)
  Sender: FDA-Public Use
  Company Number: US-BAYER-2011-021600

PATIENT
  Age: 20 Year
  Sex: Female
  Weight: 65.76 kg

DRUGS (5)
  1. YAZ [Suspect]
     Indication: PREMENSTRUAL SYNDROME
  2. ANTIBIOTICS [Concomitant]
  3. YAZ [Suspect]
     Indication: ACNE
     Dosage: UNK
     Route: 048
     Dates: start: 20070801, end: 20090501
  4. YAZ [Suspect]
  5. NSAID'S [Concomitant]

REACTIONS (4)
  - GALLBLADDER INJURY [None]
  - BILIARY COLIC [None]
  - PAIN [None]
  - PANCREATITIS [None]
